FAERS Safety Report 19309799 (Version 1)
Quarter: 2021Q2

REPORT INFORMATION
  Report Type: Spontaneous
  Country: GB (occurrence: GB)
  Receive Date: 20210526
  Receipt Date: 20210526
  Transmission Date: 20210717
  Serious: Yes (Other)
  Sender: FDA-Public Use
  Company Number: XI-VERTEX PHARMACEUTICALS-2021-008120

PATIENT
  Age: 19 Year
  Sex: Female

DRUGS (3)
  1. DORNASE ALFA. [Concomitant]
     Active Substance: DORNASE ALFA
     Indication: ILL-DEFINED DISORDER
  2. KAFTRIO [Suspect]
     Active Substance: ELEXACAFTOR\IVACAFTOR\TEZACAFTOR
     Indication: CYSTIC FIBROSIS
     Dosage: 2 TABLETS (TEZACAFTOR 50MG /ELEXACAFTOR 100MG/IVACAFTOR 75MG) EACH MORNING
     Route: 048
     Dates: start: 20210206, end: 20210329
  3. KALYDECO [Suspect]
     Active Substance: IVACAFTOR
     Indication: CYSTIC FIBROSIS
     Dosage: 150MG AT NIGHT
     Route: 048
     Dates: start: 20210206, end: 20210329

REACTIONS (1)
  - Depressed mood [Recovered/Resolved]

NARRATIVE: CASE EVENT DATE: 20210221
